FAERS Safety Report 9071596 (Version 7)
Quarter: 2013Q4

REPORT INFORMATION
  Report Type: Report from Study
  Country: DE (occurrence: DE)
  Receive Date: 20130129
  Receipt Date: 20131024
  Transmission Date: 20140711
  Serious: Yes (Hospitalization, Other)
  Sender: FDA-Public Use
  Company Number: DE-ROCHE-1183548

PATIENT
  Age: 51 Year
  Sex: Male
  Weight: 75 kg

DRUGS (11)
  1. TOCILIZUMAB [Suspect]
     Indication: RHEUMATOID ARTHRITIS
     Route: 042
     Dates: start: 20110111, end: 20120523
  2. TOCILIZUMAB [Suspect]
     Route: 065
     Dates: start: 20120302
  3. TOCILIZUMAB [Suspect]
     Route: 065
     Dates: start: 20120330
  4. TOCILIZUMAB [Suspect]
     Route: 065
     Dates: start: 20120427
  5. TOCILIZUMAB [Suspect]
     Route: 065
     Dates: start: 20120523, end: 20130130
  6. DICLOFENAC [Concomitant]
     Route: 065
     Dates: start: 201010
  7. PANTOZOL (GERMANY) [Concomitant]
     Route: 065
     Dates: start: 201010
  8. LEFLUNOMID [Concomitant]
     Route: 065
     Dates: start: 2012
  9. ASS [Concomitant]
     Indication: CORONARY ARTERY DISEASE
  10. EFIENT [Concomitant]
     Indication: CORONARY ARTERY DISEASE
  11. IBUPROFEN [Concomitant]
     Indication: CORONARY ARTERY DISEASE

REACTIONS (7)
  - Pseudarthrosis [Recovering/Resolving]
  - Wound infection [Recovering/Resolving]
  - Osteomyelitis chronic [Recovering/Resolving]
  - Fistula [Unknown]
  - Acute myocardial infarction [Recovering/Resolving]
  - Mitral valve incompetence [Unknown]
  - Open fracture [Recovered/Resolved]
